FAERS Safety Report 8001106-0 (Version None)
Quarter: 2011Q4

REPORT INFORMATION
  Report Type: 
  Country: None (occurrence: None)
  Receive Date: 20111222
  Receipt Date: 20111214
  Transmission Date: 20120403
  Serious: Yes (Other)
  Sender: FDA-Public Use
  Company Number: JP-PFIZER INC-2011303747

PATIENT
  Sex: Female

DRUGS (2)
  1. SOLU-MEDROL [Suspect]
     Dosage: 500 MG, UNK
     Route: 042
  2. BETAMETHASONE [Suspect]
     Dosage: 6 MG, UNK
     Route: 030

REACTIONS (1)
  - BRONCHIAL FISTULA [None]
